FAERS Safety Report 19156824 (Version 3)
Quarter: 2021Q3

REPORT INFORMATION
  Report Type: Other
  Country: DE (occurrence: DE)
  Receive Date: 20210420
  Receipt Date: 20210901
  Transmission Date: 20211014
  Serious: Yes (Other)
  Sender: FDA-Public Use
  Company Number: DE-ROCHE-2808361

PATIENT
  Age: 47 Year
  Sex: Female

DRUGS (1)
  1. OCRELIZUMAB. [Suspect]
     Active Substance: OCRELIZUMAB
     Indication: RELAPSING MULTIPLE SCLEROSIS
     Dosage: MOST RECENT DOSE OF 03/SEP/2020
     Route: 042
     Dates: start: 20200820

REACTIONS (1)
  - Adenoid cystic carcinoma of salivary gland [Not Recovered/Not Resolved]

NARRATIVE: CASE EVENT DATE: 20210330
